FAERS Safety Report 8946954 (Version 2)
Quarter: 2012Q4

REPORT INFORMATION
  Report Type: Report from Study
  Country: GB (occurrence: GB)
  Receive Date: 20121205
  Receipt Date: 20121226
  Transmission Date: 20130627
  Serious: Yes (Hospitalization)
  Sender: FDA-Public Use
  Company Number: GB-PFIZER INC-2012301451

PATIENT
  Age: 74 Year
  Sex: Male
  Weight: 83 kg

DRUGS (10)
  1. DOXORUBICIN HCL [Suspect]
     Indication: FOLLICULAR B-CELL NON-HODGKIN^S LYMPHOMA
     Dosage: 100 mg, every 3 weeks
     Route: 042
     Dates: start: 20101207
  2. CYCLOPHOSPHAMIDE [Suspect]
     Indication: FOLLICULAR B-CELL NON-HODGKIN^S LYMPHOMA
     Dosage: 1500 mg, every 3 weeks
     Route: 042
     Dates: start: 20101207
  3. VINCRISTINE [Suspect]
     Indication: FOLLICULAR B-CELL NON-HODGKIN^S LYMPHOMA
     Dosage: 2 mg, every 3 weeks
     Route: 042
     Dates: start: 20101207
  4. OBINUTUZUMAB [Suspect]
     Indication: FOLLICULAR B-CELL NON-HODGKIN^S LYMPHOMA
     Dosage: 1000 mg, cyclic (21 day cycle)
     Route: 042
     Dates: start: 20101207
  5. LISINOPRIL [Concomitant]
     Dosage: 10
     Dates: start: 2007
  6. MOMETASONE FUROATE [Concomitant]
     Dosage: 50 mg, UNK
     Dates: start: 2008
  7. SALBUTAMOL [Concomitant]
     Dosage: 5 mg, UNK
     Dates: start: 2007
  8. SYMBICORT [Concomitant]
     Dosage: 2 x Puffs
     Dates: start: 2007
  9. SPIRIVA [Concomitant]
     Dosage: 1 x Puff
     Route: 055
     Dates: start: 2007
  10. VENTOLIN [Concomitant]
     Dosage: 100 mg, UNK
     Route: 055
     Dates: start: 2007

REACTIONS (1)
  - Bronchopneumonia [Recovered/Resolved]
